FAERS Safety Report 6240871-X (Version None)
Quarter: 2009Q2

REPORT INFORMATION
  Report Type: 
  Country: None (occurrence: None)
  Receive Date: 20090623
  Receipt Date: 20090617
  Transmission Date: 20091009
  Serious: Yes (Hospitalization)
  Sender: FDA-Public Use
  Company Number: CA-WYE-G03870009

PATIENT
  Sex: Male

DRUGS (1)
  1. TORISEL [Suspect]
     Dosage: UNKNOWN
     Route: 042
     Dates: start: 20090324, end: 20090602

REACTIONS (1)
  - CEREBROVASCULAR ACCIDENT [None]
